FAERS Safety Report 23351914 (Version 2)
Quarter: 2024Q1

REPORT INFORMATION
  Report Type: Spontaneous
  Country: CN (occurrence: CN)
  Receive Date: 20231229
  Receipt Date: 20240108
  Transmission Date: 20240410
  Serious: Yes (Hospitalization)
  Sender: FDA-Public Use
  Company Number: CN-002147023-NVSC2023CN276093

PATIENT
  Age: 3 Year
  Sex: Male
  Weight: 16.5 kg

DRUGS (3)
  1. TEGRETOL [Suspect]
     Active Substance: CARBAMAZEPINE
     Indication: Epilepsy
     Dosage: 0.1 G, BID
     Route: 048
     Dates: start: 20231211, end: 20231211
  2. TEGRETOL [Suspect]
     Active Substance: CARBAMAZEPINE
     Dosage: 0.1 G, TID
     Route: 048
     Dates: start: 20231212, end: 20231215
  3. TEGRETOL [Suspect]
     Active Substance: CARBAMAZEPINE
     Dosage: 0.2 G, BID
     Route: 048
     Dates: start: 20231215, end: 20231222

REACTIONS (4)
  - Rash maculo-papular [Recovered/Resolved]
  - Rash erythematous [Recovered/Resolved]
  - Pruritus [Recovered/Resolved]
  - Hypersensitivity [Unknown]

NARRATIVE: CASE EVENT DATE: 20231220
